FAERS Safety Report 19615856 (Version 1)
Quarter: 2021Q3

REPORT INFORMATION
  Report Type: Spontaneous
  Country: US (occurrence: US)
  Receive Date: 20210727
  Receipt Date: 20210727
  Transmission Date: 20211014
  Serious: No
  Sender: FDA-Public Use
  Company Number: US-JACOBUS PHARMACEUTICAL COMPANY, INC.-2114339

PATIENT
  Age: 56 Year
  Sex: Male

DRUGS (23)
  1. RUZURGI [Suspect]
     Active Substance: AMIFAMPRIDINE
     Indication: MYASTHENIC SYNDROME
     Route: 048
     Dates: start: 20210409
  2. VITAMIN D [Concomitant]
     Active Substance: VITAMIN D NOS
  3. MILK OF MAGNESIA [Concomitant]
     Active Substance: MAGNESIUM HYDROXIDE
  4. BETAMETHASONE DIPROPIONATE. [Concomitant]
     Active Substance: BETAMETHASONE DIPROPIONATE
  5. LISINOPRIL. [Concomitant]
     Active Substance: LISINOPRIL
  6. CARVEDILOL. [Concomitant]
     Active Substance: CARVEDILOL
  7. ZOLOFT [Concomitant]
     Active Substance: SERTRALINE HYDROCHLORIDE
  8. TRAZODONE HYDROCHLORIDE. [Concomitant]
     Active Substance: TRAZODONE HYDROCHLORIDE
  9. TRESIBA [Concomitant]
     Active Substance: INSULIN DEGLUDEC
  10. BACITRACIN. [Concomitant]
     Active Substance: BACITRACIN
  11. BUPROPION. [Concomitant]
     Active Substance: BUPROPION
  12. FLUOROMETHOLONE. [Concomitant]
     Active Substance: FLUOROMETHOLONE
  13. OXYCODONE HYDROCHLORIDE. [Concomitant]
     Active Substance: OXYCODONE HYDROCHLORIDE
  14. ERGOCALCIFEROL. [Concomitant]
     Active Substance: ERGOCALCIFEROL
  15. SENOKOT?S [Concomitant]
     Active Substance: DOCUSATE SODIUM\SENNOSIDES
  16. DIAZEPAM. [Concomitant]
     Active Substance: DIAZEPAM
  17. LYRICA [Concomitant]
     Active Substance: PREGABALIN
  18. MIRALAX [Concomitant]
     Active Substance: POLYETHYLENE GLYCOL 3350
  19. NOVOLOG [Concomitant]
     Active Substance: INSULIN ASPART
  20. HYDROXYZINE [Suspect]
     Active Substance: HYDROXYZINE HYDROCHLORIDE
  21. VITAMIN C [Concomitant]
     Active Substance: ASCORBIC ACID
  22. TRAMADOL. [Concomitant]
     Active Substance: TRAMADOL
  23. TOUJEO [Concomitant]
     Active Substance: INSULIN GLARGINE

REACTIONS (1)
  - Drug ineffective [Unknown]
